FAERS Safety Report 15286249 (Version 2)
Quarter: 2018Q3

REPORT INFORMATION
  Report Type: Spontaneous
  Country: US (occurrence: US)
  Receive Date: 20180816
  Receipt Date: 20180821
  Transmission Date: 20181010
  Serious: Yes (Death)
  Sender: FDA-Public Use
  Company Number: US-CELGENEUS-USA-20180803923

PATIENT
  Sex: Male
  Weight: 77.18 kg

DRUGS (1)
  1. IDHIFA [Suspect]
     Active Substance: ENASIDENIB MESYLATE
     Indication: ACUTE MYELOID LEUKAEMIA
     Dosage: 100 MILLIGRAM
     Route: 048
     Dates: start: 20180614

REACTIONS (3)
  - Death [Fatal]
  - Oral fungal infection [Unknown]
  - Dysphagia [Unknown]

NARRATIVE: CASE EVENT DATE: 2018
